FAERS Safety Report 5093395-X (Version None)
Quarter: 2006Q3

REPORT INFORMATION
  Report Type: 
  Country: None (occurrence: None)
  Receive Date: 20060828
  Receipt Date: 20060817
  Transmission Date: 20061208
  Serious: Yes (Hospitalization)
  Sender: FDA-Public Use
  Company Number: VISP-NO-0606S-0412

PATIENT
  Age: 80 Year
  Sex: Male

DRUGS (5)
  1. VISIPAQUE [Suspect]
     Indication: PULMONARY EMBOLISM
     Dosage: I.V.
     Route: 042
     Dates: start: 20051102, end: 20051102
  2. CLAFORAN [Concomitant]
  3. RIFADIN [Concomitant]
  4. CLOBUTINOL HYDROCHLORIDE (SILOMAT) [Concomitant]
  5. VANCOMYCIN [Concomitant]

REACTIONS (4)
  - DRUG RASH WITH EOSINOPHILIA AND SYSTEMIC SYMPTOMS [None]
  - PULMONARY EMBOLISM [None]
  - SKIN TEST POSITIVE [None]
  - THROMBOCYTOPENIA [None]
